FAERS Safety Report 24219055 (Version 1)
Quarter: 2024Q3

REPORT INFORMATION
  Report Type: Spontaneous
  Country: US (occurrence: US)
  Receive Date: 20240816
  Receipt Date: 20240816
  Transmission Date: 20241017
  Serious: Yes (Other)
  Sender: NOVARTIS
  Company Number: US-002147023-NVSC2024US166011

PATIENT
  Sex: Female

DRUGS (6)
  1. TEGRETOL XR [Suspect]
     Active Substance: CARBAMAZEPINE
     Indication: Seizure
     Dosage: 400 MG, BID (TAKES 2 200MG TABLETS IN THE MORNING AND 2 200MG TABLETS AT NIGHT)
     Route: 065
  2. TEGRETOL XR [Suspect]
     Active Substance: CARBAMAZEPINE
     Dosage: UNK (100 MG)
     Route: 065
  3. CARBAMAZEPINE [Suspect]
     Active Substance: CARBAMAZEPINE
     Indication: Product used for unknown indication
     Dosage: UNK
     Route: 065
  4. DILANTIN [Suspect]
     Active Substance: PHENYTOIN
     Indication: Product used for unknown indication
     Dosage: UNK (OVER 30 YEARS AGO)
     Route: 065
  5. PROPRANOLOL [Concomitant]
     Active Substance: PROPRANOLOL HYDROCHLORIDE
     Indication: Tremor
     Dosage: 20 MG, BID
     Route: 065
  6. IMMUNOGLOBULIN [Concomitant]
     Indication: Polymyositis
     Dosage: UNK
     Route: 042

REACTIONS (6)
  - Seizure [Unknown]
  - Tendonitis [Unknown]
  - Mood swings [Unknown]
  - Expired product administered [Unknown]
  - Product supply issue [Unknown]
  - Product availability issue [Unknown]
